FAERS Safety Report 9979983 (Version 1)
Quarter: 2014Q1

REPORT INFORMATION
  Report Type: Report from Study
  Country: US (occurrence: US)
  Receive Date: 20140307
  Receipt Date: 20140307
  Transmission Date: 20141002
  Serious: No
  Sender: FDA-Public Use
  Company Number: US-ABBVIE-13P-163-1176221-00

PATIENT
  Age: 21 Year
  Sex: Male

DRUGS (5)
  1. HUMIRA [Suspect]
     Indication: CROHN^S DISEASE
     Dosage: LOADING DOSE
     Dates: start: 20131112, end: 20131112
  2. HUMIRA [Suspect]
  3. OXYCODONE [Concomitant]
     Indication: PAIN
     Dosage: 5/500MG
  4. OXYCODONE [Concomitant]
     Indication: CROHN^S DISEASE
  5. PREDNISONE [Concomitant]
     Indication: CROHN^S DISEASE

REACTIONS (1)
  - Drug dose omission [Not Recovered/Not Resolved]
